FAERS Safety Report 18409833 (Version 1)
Quarter: 2020Q4

REPORT INFORMATION
  Report Type: Report from Study
  Country: ES (occurrence: ES)
  Receive Date: 20201021
  Receipt Date: 20201021
  Transmission Date: 20210114
  Serious: Yes (Other)
  Sender: FDA-Public Use
  Company Number: ES-BAUSCH-BL-2020-029657

PATIENT
  Age: 9 Decade
  Sex: Male

DRUGS (8)
  1. MELPHALAN. [Suspect]
     Active Substance: MELPHALAN
     Indication: OFF LABEL USE
  2. PREDNISOLONE. [Suspect]
     Active Substance: PREDNISOLONE
     Indication: OFF LABEL USE
  3. DARZALEX [Suspect]
     Active Substance: DARATUMUMAB
     Indication: OFF LABEL USE
  4. MELPHALAN. [Suspect]
     Active Substance: MELPHALAN
     Indication: PLASMA CELL MYELOMA
     Route: 065
  5. PREDNISOLONE. [Suspect]
     Active Substance: PREDNISOLONE
     Indication: PLASMA CELL MYELOMA
     Route: 065
  6. DARZALEX [Suspect]
     Active Substance: DARATUMUMAB
     Indication: PLASMA CELL MYELOMA
     Route: 065
  7. VELCADE [Suspect]
     Active Substance: BORTEZOMIB
     Indication: PLASMA CELL MYELOMA
     Route: 065
  8. VELCADE [Suspect]
     Active Substance: BORTEZOMIB
     Indication: OFF LABEL USE

REACTIONS (3)
  - Off label use [Unknown]
  - Atrial fibrillation [Unknown]
  - Product use issue [Unknown]
